FAERS Safety Report 23551808 (Version 2)
Quarter: 2024Q3

REPORT INFORMATION
  Report Type: Spontaneous
  Country: JP (occurrence: JP)
  Receive Date: 20240222
  Receipt Date: 20240719
  Transmission Date: 20241016
  Serious: Yes (Life-Threatening, Hospitalization, Other)
  Sender: GLAXOSMITHKLINE
  Company Number: JP-GLAXOSMITHKLINE-JP2024JPN022249

PATIENT

DRUGS (4)
  1. LAMICTAL [Interacting]
     Active Substance: LAMOTRIGINE
     Dosage: 2000 MG
  2. ATOMOXETINE HYDROCHLORIDE [Interacting]
     Active Substance: ATOMOXETINE HYDROCHLORIDE
     Dosage: 5600 MG
  3. VALPROATE SODIUM [Interacting]
     Active Substance: VALPROATE SODIUM
     Dosage: 6800 MG
  4. TRIAZOLAM [Suspect]
     Active Substance: TRIAZOLAM
     Dosage: 3.75 MG

REACTIONS (7)
  - Ventricular tachycardia [Unknown]
  - Loss of consciousness [Unknown]
  - Toxicity to various agents [Unknown]
  - Acidosis [Unknown]
  - Hyperlactacidaemia [Unknown]
  - Drug interaction [Unknown]
  - Overdose [Unknown]
